FAERS Safety Report 15762681 (Version 1)
Quarter: 2018Q4

REPORT INFORMATION
  Report Type: Spontaneous
  Country: FR (occurrence: FR)
  Receive Date: 20181226
  Receipt Date: 20181226
  Transmission Date: 20190205
  Serious: Yes (Death, Other)
  Sender: FDA-Public Use
  Company Number: FR-JNJFOC-20181229704

PATIENT

DRUGS (4)
  1. DEXAMETHASONE. [Suspect]
     Active Substance: DEXAMETHASONE
     Indication: SYNOVIAL SARCOMA
     Route: 064
  2. MESNA. [Suspect]
     Active Substance: MESNA
     Indication: SYNOVIAL SARCOMA
     Route: 064
  3. DOXORUBICIN HYDROCHLORIDE. [Suspect]
     Active Substance: DOXORUBICIN HYDROCHLORIDE
     Indication: SYNOVIAL SARCOMA
     Route: 064
  4. IFOSFAMIDE. [Suspect]
     Active Substance: IFOSFAMIDE
     Indication: SYNOVIAL SARCOMA
     Route: 064

REACTIONS (3)
  - Foetal death [Fatal]
  - Foetal exposure during pregnancy [Unknown]
  - Foetal growth restriction [Unknown]
